FAERS Safety Report 5677241-9 (Version None)
Quarter: 2008Q1

REPORT INFORMATION
  Report Type: 
  Country: None (occurrence: None)
  Receive Date: 20080321
  Receipt Date: 20080321
  Transmission Date: 20080703
  Serious: Yes (Other)
  Sender: FDA-Public Use
  Company Number: None

PATIENT
  Age: 33 Year
  Sex: Female
  Weight: 79.3795 kg

DRUGS (1)
  1. MONISTAT 1 COMBINATION PACK [Suspect]
     Indication: FUNGAL INFECTION
     Dosage: SINGLE-USE APPLICATOR  ONCE  VAG
     Route: 067
     Dates: start: 20080317, end: 20080317

REACTIONS (12)
  - ACTIVITIES OF DAILY LIVING IMPAIRED [None]
  - DYSURIA [None]
  - ERYTHEMA [None]
  - ILL-DEFINED DISORDER [None]
  - PAIN [None]
  - PHARMACEUTICAL PRODUCT COMPLAINT [None]
  - RECTAL TENESMUS [None]
  - SIMILAR REACTION ON PREVIOUS EXPOSURE TO DRUG [None]
  - VAGINAL SWELLING [None]
  - VULVOVAGINAL BURNING SENSATION [None]
  - VULVOVAGINAL DISCOMFORT [None]
  - VULVOVAGINAL PRURITUS [None]
